FAERS Safety Report 5295737-9 (Version None)
Quarter: 2007Q2

REPORT INFORMATION
  Report Type: 
  Country: None (occurrence: None)
  Receive Date: 20070406
  Receipt Date: 20070117
  Transmission Date: 20071010
  Serious: Yes (Disabling)
  Sender: FDA-Public Use
  Company Number: STI-2007-00049

PATIENT
  Age: 14 Year
  Sex: Male

DRUGS (1)
  1. CLINDAMYCIN [Suspect]
     Indication: ACNE
     Dosage: TOPICAL FEW WEEKS
     Route: 061

REACTIONS (5)
  - ARNOLD-CHIARI MALFORMATION [None]
  - DEAFNESS UNILATERAL [None]
  - HAEMANGIOMA [None]
  - HEADACHE [None]
  - TINNITUS [None]
